FAERS Safety Report 6839738-5 (Version None)
Quarter: 2010Q3

REPORT INFORMATION
  Report Type: 
  Country: None (occurrence: None)
  Receive Date: 20100714
  Receipt Date: 20100707
  Transmission Date: 20110219
  Serious: Yes (Hospitalization)
  Sender: FDA-Public Use
  Company Number: US-GILEAD-2010-0030303

PATIENT
  Age: 66 Year
  Sex: Male

DRUGS (12)
  1. LETAIRIS [Suspect]
     Indication: PULMONARY ARTERIAL HYPERTENSION
     Route: 048
     Dates: start: 20100623, end: 20100703
  2. VIAGRA [Concomitant]
  3. FUROSEMIDE [Concomitant]
  4. AMIODARONE HCL [Concomitant]
  5. PRAVASTATIN [Concomitant]
  6. ALBUTEROL [Concomitant]
  7. NOVOLOG [Concomitant]
  8. LEVEMIR [Concomitant]
  9. PANTOPRAZOLE [Concomitant]
  10. MULTI-VITAMIN [Concomitant]
  11. POTASSIUM CHLORIDE [Concomitant]
  12. VITAMIN D3 [Concomitant]

REACTIONS (2)
  - OEDEMA PERIPHERAL [None]
  - UNEVALUABLE EVENT [None]
